FAERS Safety Report 5808313-3 (Version None)
Quarter: 2008Q3

REPORT INFORMATION
  Report Type: 
  Country: None (occurrence: None)
  Receive Date: 20080708
  Receipt Date: 20080623
  Transmission Date: 20090109
  Serious: Yes (Hospitalization)
  Sender: FDA-Public Use
  Company Number: AEUSA200800144

PATIENT
  Age: 50 Year
  Sex: Male

DRUGS (1)
  1. PROLASTIN (ALPHA, PROTINASE INHIBITOR (HUMAN)) [Suspect]
     Indication: ALPHA-1 ANTI-TRYPSIN DEFICIENCY
     Dosage: 1X, IV
     Route: 042
     Dates: end: 20080601

REACTIONS (6)
  - CHILLS [None]
  - CONFUSIONAL STATE [None]
  - DISORIENTATION [None]
  - DIZZINESS [None]
  - PYREXIA [None]
  - TREMOR [None]
